FAERS Safety Report 6737750-8 (Version None)
Quarter: 2010Q2

REPORT INFORMATION
  Report Type: 
  Country: None (occurrence: None)
  Receive Date: 20100524
  Receipt Date: 20100519
  Transmission Date: 20101027
  Serious: Yes (Death, Hospitalization)
  Sender: FDA-Public Use
  Company Number: PHHO2009NL09920

PATIENT
  Sex: Male
  Weight: 67.9 kg

DRUGS (6)
  1. EXELON [Suspect]
     Indication: DEMENTIA
     Dosage: U4.6 MG/24 HRS
     Route: 058
     Dates: start: 20090513
  2. CIPRAMIL [Concomitant]
     Indication: DEPRESSION
  3. LEPONEX [Concomitant]
  4. OMNIC [Concomitant]
  5. MADOPAR [Concomitant]
  6. SINEMET [Concomitant]

REACTIONS (5)
  - ASTHENIA [None]
  - BRONCHOPNEUMONIA [None]
  - CONFUSIONAL STATE [None]
  - DISEASE PROGRESSION [None]
  - WEIGHT DECREASED [None]
